FAERS Safety Report 18725867 (Version 1)
Quarter: 2021Q1

REPORT INFORMATION
  Report Type: Spontaneous
  Country: SG (occurrence: SG)
  Receive Date: 20210111
  Receipt Date: 20210111
  Transmission Date: 20210419
  Serious: Yes (Other)
  Sender: FDA-Public Use
  Company Number: SG-EUSA PHARMA (UK) LIMITED-2020SG000318

PATIENT

DRUGS (2)
  1. SYLVANT [Suspect]
     Active Substance: SILTUXIMAB
     Indication: CASTLEMAN^S DISEASE
     Dosage: 700 MG
     Route: 065
     Dates: start: 202011
  2. SYLVANT [Suspect]
     Active Substance: SILTUXIMAB
     Dosage: 600 MG
     Route: 065
     Dates: start: 2020

REACTIONS (4)
  - Asthenia [Unknown]
  - Weight decreased [Unknown]
  - Demyelinating polyneuropathy [Unknown]
  - Hypoaesthesia [Unknown]

NARRATIVE: CASE EVENT DATE: 2020
